FAERS Safety Report 18917816 (Version 2)
Quarter: 2021Q1

REPORT INFORMATION
  Report Type: Spontaneous
  Country: CA (occurrence: CA)
  Receive Date: 20210219
  Receipt Date: 20210309
  Transmission Date: 20210420
  Serious: Yes (Hospitalization, Other)
  Sender: FDA-Public Use
  Company Number: CA-BAUSCH-BL-2021-005164

PATIENT
  Age: 11 Year
  Sex: Male

DRUGS (46)
  1. SALBUTAMOL [Suspect]
     Active Substance: ALBUTEROL
     Dosage: AS REQUIRED
     Route: 065
  2. FLUTICASONE. [Suspect]
     Active Substance: FLUTICASONE
     Indication: CHILD ABUSE
  3. HYDROMORPHONE [Suspect]
     Active Substance: HYDROMORPHONE
     Indication: PAIN MANAGEMENT
  4. LEUPROLIDE [Suspect]
     Active Substance: LEUPROLIDE
     Indication: CHILD ABUSE
     Route: 030
  5. MACROGOL 3350 [Suspect]
     Active Substance: POLYETHYLENE GLYCOL 3350
     Indication: CHILD ABUSE
     Route: 048
  6. MELATONIN [Suspect]
     Active Substance: MELATONIN
     Indication: CHILD ABUSE
     Route: 048
  7. MELATONIN [Suspect]
     Active Substance: MELATONIN
     Indication: SLEEP DEFICIT
  8. CLONIDINE. [Suspect]
     Active Substance: CLONIDINE
     Indication: CHILD ABUSE
     Route: 048
  9. LORAZEPAM. [Suspect]
     Active Substance: LORAZEPAM
     Indication: PAIN MANAGEMENT
  10. LORAZEPAM. [Suspect]
     Active Substance: LORAZEPAM
     Indication: MUSCLE SPASMS
  11. METHOCARBAMOL/ACETAMINOPHEN [Suspect]
     Active Substance: ACETAMINOPHEN\METHOCARBAMOL
     Indication: CHILD ABUSE
     Route: 048
  12. EXTRA STRENGTH TYLENOL BACK PAIN [Suspect]
     Active Substance: ACETAMINOPHEN\METHOCARBAMOL
     Indication: PRODUCT USED FOR UNKNOWN INDICATION
     Route: 048
  13. ARIPIPRAZOLE. [Suspect]
     Active Substance: ARIPIPRAZOLE
     Indication: CHILD ABUSE
     Route: 048
  14. CLONIDINE. [Suspect]
     Active Substance: CLONIDINE
     Route: 048
  15. DIMENHYDRINATE. [Suspect]
     Active Substance: DIMENHYDRINATE
     Indication: CHILD ABUSE
     Dosage: AS REQUIRED
     Route: 048
  16. DIMENHYDRINATE. [Suspect]
     Active Substance: DIMENHYDRINATE
     Indication: CONSTIPATION
  17. GABAPENTIN. [Suspect]
     Active Substance: GABAPENTIN
     Indication: CHILD ABUSE
     Route: 048
  18. GABAPENTIN. [Suspect]
     Active Substance: GABAPENTIN
     Indication: PAIN MANAGEMENT
  19. METHOCARBAMOL. [Suspect]
     Active Substance: METHOCARBAMOL
     Indication: PRODUCT USED FOR UNKNOWN INDICATION
     Route: 065
  20. ACT FLUOXETINE [Suspect]
     Active Substance: FLUOXETINE HYDROCHLORIDE
     Indication: CHILD ABUSE
     Route: 048
  21. CELECOXIB. [Suspect]
     Active Substance: CELECOXIB
     Indication: CHILD ABUSE
     Route: 048
  22. CLOBAZAM. [Suspect]
     Active Substance: CLOBAZAM
     Indication: CHILD ABUSE
     Route: 048
  23. HYDROXYCHLOROQUINE [Suspect]
     Active Substance: HYDROXYCHLOROQUINE
     Indication: CHILD ABUSE
     Route: 048
  24. PANTOPRAZOLE [Suspect]
     Active Substance: PANTOPRAZOLE
     Indication: CHILD ABUSE
     Route: 048
  25. FLUTICASONE PROPIONATE. [Suspect]
     Active Substance: FLUTICASONE PROPIONATE
     Indication: PRODUCT USED FOR UNKNOWN INDICATION
     Route: 065
  26. BACLOFEN. [Suspect]
     Active Substance: BACLOFEN
     Indication: CHILD ABUSE
     Route: 048
  27. LORAZEPAM. [Suspect]
     Active Substance: LORAZEPAM
     Indication: SEIZURE
     Dosage: AS REQUIRED
     Route: 060
  28. MONTELUKAST SODIUM. [Suspect]
     Active Substance: MONTELUKAST SODIUM
     Indication: CHILD ABUSE
     Route: 048
  29. PHENOBARBITAL. [Suspect]
     Active Substance: PHENOBARBITAL
     Indication: CHILD ABUSE
     Route: 048
  30. VITAMIN C [Suspect]
     Active Substance: ASCORBIC ACID
     Indication: CHILD ABUSE
     Route: 048
  31. VITAMIN D3 [Suspect]
     Active Substance: CHOLECALCIFEROL
     Indication: VITAMIN SUPPLEMENTATION
     Route: 048
  32. SALBUTAMOL [Suspect]
     Active Substance: ALBUTEROL
     Indication: CHILD ABUSE
  33. DIPHENHYDRAMINE. [Suspect]
     Active Substance: DIPHENHYDRAMINE
     Indication: CHILD ABUSE
     Route: 048
  34. KETOROLAC [Suspect]
     Active Substance: KETOROLAC TROMETHAMINE
     Indication: CHILD ABUSE
     Route: 048
  35. KETOROLAC [Suspect]
     Active Substance: KETOROLAC TROMETHAMINE
     Indication: PAIN
  36. LORAZEPAM. [Suspect]
     Active Substance: LORAZEPAM
     Indication: CHILD ABUSE
     Dosage: AS REQUIRED
     Route: 060
  37. METHADONE [Suspect]
     Active Substance: METHADONE HYDROCHLORIDE
     Indication: CHILD ABUSE
     Route: 048
  38. SALBUTAMOL [Suspect]
     Active Substance: ALBUTEROL
  39. BISACODYL. [Suspect]
     Active Substance: BISACODYL
     Indication: CHILD ABUSE
     Dosage: AS REQUIRED
     Route: 048
  40. CELECOXIB. [Suspect]
     Active Substance: CELECOXIB
     Indication: PAIN MANAGEMENT
  41. VITAMIN D3 [Suspect]
     Active Substance: CHOLECALCIFEROL
     Indication: CHILD ABUSE
     Route: 048
  42. POLYETHYLENE GLYCOL [Suspect]
     Active Substance: POLYETHYLENE GLYCOLS
     Indication: PRODUCT USED FOR UNKNOWN INDICATION
     Route: 048
  43. DIPHENHYDRAMINE. [Suspect]
     Active Substance: DIPHENHYDRAMINE
     Indication: PRURITUS
  44. HYDROMORPHONE [Suspect]
     Active Substance: HYDROMORPHONE
     Indication: CHILD ABUSE
     Route: 065
  45. RANITIDINE. [Suspect]
     Active Substance: RANITIDINE
     Indication: CHILD ABUSE
     Route: 048
  46. FISH OIL [Suspect]
     Active Substance: FISH OIL
     Indication: PRODUCT USED FOR UNKNOWN INDICATION
     Route: 048

REACTIONS (8)
  - Victim of child abuse [Recovered/Resolved]
  - Product prescribing error [Unknown]
  - Drug abuse [Unknown]
  - Respiratory depression [Unknown]
  - Child abuse [Unknown]
  - Intentional product misuse [Unknown]
  - Drug dependence [Unknown]
  - Drug ineffective [Unknown]
